FAERS Safety Report 9689731 (Version 1)
Quarter: 2013Q4

REPORT INFORMATION
  Report Type: Report from Study
  Country: US (occurrence: US)
  Receive Date: 20131115
  Receipt Date: 20131115
  Transmission Date: 20140711
  Serious: Yes (Other)
  Sender: FDA-Public Use
  Company Number: US-JNJFOC-20131104791

PATIENT
  Age: 36 Year
  Sex: Male

DRUGS (22)
  1. RISPERDAL [Suspect]
     Indication: PRODUCT USED FOR UNKNOWN INDICATION
     Dosage: TAKE ONE TABLET BY MOUTH NIGHTLY
     Route: 048
  2. PROVENTIL [Concomitant]
     Indication: WHEEZING
     Dosage: INHALE 2 PUFFS INTO THE LINGS EVERY SIS HOURS AS NEEDED
     Route: 055
  3. AMOXIL [Concomitant]
     Route: 048
  4. ECOTRIN [Concomitant]
     Route: 048
  5. BUSPAR [Concomitant]
     Route: 048
  6. CELEBREX [Concomitant]
     Route: 048
  7. CHANTIX [Concomitant]
     Dosage: CONTINUING MONTH BOX
     Route: 048
  8. CHANTIX [Concomitant]
     Dosage: AS DIRECTED
     Route: 048
  9. CYMBALTA [Concomitant]
     Route: 048
  10. DALIRESP [Concomitant]
     Dosage: MAY BE GIVEN WITH OR WITHOUT FOOD
     Route: 048
  11. DULERA [Concomitant]
     Dosage: 200- 5 MICROGRAM, INHALE 2 PUFFS INTO THE LUNGS TWICE A DAY. RINSE MOUTH AFTER USE.
     Route: 055
  12. VASOTEC [Concomitant]
     Route: 048
  13. TRICOR [Concomitant]
     Route: 048
  14. PROZAC [Concomitant]
     Route: 048
  15. LYRICA [Concomitant]
     Route: 048
  16. LYRICA [Concomitant]
     Route: 048
  17. LOVAZA [Concomitant]
     Route: 048
  18. PRILOSEC [Concomitant]
     Route: 048
  19. PARAFON FORTE [Concomitant]
     Indication: MUSCLE SPASMS
     Dosage: TAKE ONE TABLET THRICE DAILY AS NEEDED
     Route: 048
  20. PROTONIX [Concomitant]
     Dosage: TAKE 1 TABLET EVERY MORNING BEFORE BREAKFAST
     Route: 048
  21. SPIRIVA [Concomitant]
     Dosage: WITH HAND INHALER
     Route: 055
  22. VITAMIN B-12 [Concomitant]
     Route: 065

REACTIONS (16)
  - Bipolar I disorder [Unknown]
  - Diabetes mellitus inadequate control [Unknown]
  - Depression [Unknown]
  - Chronic obstructive pulmonary disease [Unknown]
  - Neuropathy peripheral [Unknown]
  - Blood cholesterol increased [Unknown]
  - Essential hypertension [Unknown]
  - Anxiety disorder [Unknown]
  - Pain in extremity [Unknown]
  - Chest pain [Unknown]
  - Gastrooesophageal reflux disease [Unknown]
  - Back pain [Unknown]
  - Neck pain [Unknown]
  - Snoring [Unknown]
  - Headache [Unknown]
  - Pedal pulse decreased [Unknown]
